FAERS Safety Report 6531721-2 (Version None)
Quarter: 2010Q1

REPORT INFORMATION
  Report Type: 
  Country: None (occurrence: None)
  Receive Date: 20100108
  Receipt Date: 20091229
  Transmission Date: 20100710
  Serious: Yes (Hospitalization)
  Sender: FDA-Public Use
  Company Number: B0621746A

PATIENT
  Sex: Female

DRUGS (12)
  1. BETNEVAL [Suspect]
     Dosage: 1APP PER DAY
     Route: 061
     Dates: start: 20090903
  2. PREVISCAN [Suspect]
     Dosage: 15MG PER DAY
     Route: 048
     Dates: end: 20091002
  3. PYOSTACINE [Suspect]
     Indication: ERYSIPELAS
     Dosage: 500MG PER DAY
     Route: 048
     Dates: start: 20090930
  4. CARDENSIEL [Concomitant]
     Route: 065
  5. LASILIX [Concomitant]
     Route: 065
  6. KALEORID [Concomitant]
     Route: 065
  7. ELISOR [Concomitant]
     Route: 065
  8. FOSAVANCE [Concomitant]
     Route: 065
  9. CACIT D3 [Concomitant]
     Route: 065
  10. DELURSAN [Concomitant]
     Route: 065
  11. SODIUM HYALURONATE [Concomitant]
     Route: 061
     Dates: start: 20090903
  12. DEXERYL (FRANCE) [Concomitant]
     Route: 061
     Dates: start: 20090903

REACTIONS (11)
  - DERMATITIS BULLOUS [None]
  - FACE OEDEMA [None]
  - GENERALISED ERYTHEMA [None]
  - INTERNATIONAL NORMALISED RATIO INCREASED [None]
  - PRURITUS [None]
  - PURPURA [None]
  - PYREXIA [None]
  - RASH MACULAR [None]
  - SKIN DISORDER [None]
  - THROMBOCYTOPENIA [None]
  - TOXIC SKIN ERUPTION [None]
